FAERS Safety Report 7208326-3 (Version None)
Quarter: 2011Q1

REPORT INFORMATION
  Report Type: 
  Country: None (occurrence: None)
  Receive Date: 20110104
  Receipt Date: 20101224
  Transmission Date: 20110831
  Serious: Yes (Hospitalization)
  Sender: FDA-Public Use
  Company Number: IN-SANOFI-AVENTIS-2010SA077930

PATIENT
  Age: 58 Year
  Sex: Male
  Weight: 66.8 kg

DRUGS (19)
  1. LANTUS [Suspect]
     Dosage: DOSE:10 UNIT(S)
     Route: 058
     Dates: start: 20100804, end: 20100810
  2. PLACEBO [Suspect]
     Route: 058
     Dates: start: 20101109
  3. LANTUS [Suspect]
     Dosage: DOSE:16 UNIT(S)
     Route: 058
     Dates: start: 20100819, end: 20100821
  4. SOLOSTAR [Suspect]
     Route: 058
     Dates: start: 20100804
  5. ENALAPRIL [Concomitant]
     Route: 048
     Dates: start: 20050101
  6. LANTUS [Suspect]
     Dosage: DOSE:14 UNIT(S)
     Route: 058
     Dates: start: 20100811, end: 20100818
  7. LANTUS [Suspect]
     Dosage: DOSE:32 UNIT(S)
     Route: 058
     Dates: start: 20100916, end: 20100922
  8. LANTUS [Suspect]
     Dosage: DOSE:36 UNIT(S)
     Route: 058
     Dates: start: 20100923, end: 20100926
  9. OPTICLICK [Suspect]
     Route: 058
     Dates: start: 20101027
  10. PLACEBO [Suspect]
     Route: 058
     Dates: start: 20101104, end: 20101108
  11. LANTUS [Suspect]
     Dosage: DOSE:24 UNIT(S)
     Route: 058
     Dates: start: 20100831, end: 20100908
  12. LANTUS [Suspect]
     Dosage: DOSE:44 UNIT(S)
     Route: 058
     Dates: start: 20101007, end: 20101018
  13. LANTUS [Suspect]
     Dosage: DOSE:40 UNIT(S)
     Route: 058
     Dates: start: 20100927, end: 20101006
  14. METFORMIN [Concomitant]
     Route: 048
     Dates: start: 20091204
  15. LANTUS [Suspect]
     Dosage: DOSE:20 UNIT(S)
     Route: 058
     Dates: start: 20100826, end: 20100830
  16. LANTUS [Suspect]
     Dosage: DOSE:28 UNIT(S)
     Route: 058
     Dates: start: 20100909, end: 20100915
  17. ATORVASTATIN [Concomitant]
     Route: 048
     Dates: start: 20100809
  18. PLACEBO [Suspect]
     Route: 058
     Dates: start: 20101027, end: 20101103
  19. LANTUS [Suspect]
     Dosage: DOSE:46 UNIT(S)
     Route: 058
     Dates: start: 20101019

REACTIONS (1)
  - ACUTE MYOCARDIAL INFARCTION [None]
